FAERS Safety Report 7055265-7 (Version None)
Quarter: 2010Q4

REPORT INFORMATION
  Report Type: 
  Country: None (occurrence: None)
  Receive Date: 20101021
  Receipt Date: 20101012
  Transmission Date: 20110411
  Serious: Yes (Other)
  Sender: FDA-Public Use
  Company Number: CH-ASTRAZENECA-2002SE05462

PATIENT
  Age: 20473 Day
  Sex: Female
  Weight: 64.3 kg

DRUGS (7)
  1. FASLODEX [Suspect]
     Indication: BREAST CANCER METASTATIC
     Route: 030
     Dates: start: 20010308, end: 20020914
  2. FASLODEX [Suspect]
     Route: 030
     Dates: start: 20040201, end: 20060601
  3. FASLODEX [Suspect]
     Dosage: FULL DOSE
     Route: 030
  4. FASLODEX [Suspect]
     Route: 030
     Dates: start: 20070101
  5. CALCIUM [Concomitant]
     Indication: OSTEOPOROSIS
     Route: 048
     Dates: start: 20020816
  6. MAGNESIUM [Concomitant]
     Indication: MINERAL SUPPLEMENTATION
     Route: 048
     Dates: start: 20020816
  7. EMOFLUR [Concomitant]
     Indication: DYSPAREUNIA
     Dates: start: 20020503

REACTIONS (10)
  - ASTHENIA [None]
  - DRY MOUTH [None]
  - INCORRECT DOSE ADMINISTERED [None]
  - LOSS OF LIBIDO [None]
  - PHARYNGITIS [None]
  - STOMATITIS [None]
  - THROMBOPHLEBITIS [None]
  - VAGINAL INFLAMMATION [None]
  - VAGINAL ULCERATION [None]
  - VULVOVAGINAL DRYNESS [None]
